FAERS Safety Report 24065364 (Version 1)
Quarter: 2024Q3

REPORT INFORMATION
  Report Type: Spontaneous
  Country: US (occurrence: None)
  Receive Date: 20240708
  Receipt Date: 20240708
  Transmission Date: 20241017
  Serious: No
  Sender: Public
  Company Number: None

PATIENT
  Sex: Male

DRUGS (3)
  1. LENALIDOMIDE [Suspect]
     Active Substance: LENALIDOMIDE
     Indication: Plasma cell myeloma
     Dosage: 10MG ONCE DAILY 21 DAYS ON  ORAL
     Route: 048
     Dates: start: 202404
  2. DEXAMETHASONE [Concomitant]
     Active Substance: DEXAMETHASONE
  3. REVLIMID [Concomitant]
     Active Substance: LENALIDOMIDE

REACTIONS (5)
  - Migraine [None]
  - Peripheral swelling [None]
  - Hypoaesthesia [None]
  - Dry eye [None]
  - Oedema [None]
